FAERS Safety Report 12443704 (Version 1)
Quarter: 2016Q2

REPORT INFORMATION
  Report Type: Spontaneous
  Country: FR (occurrence: FR)
  Receive Date: 20160607
  Receipt Date: 20160607
  Transmission Date: 20160815
  Serious: Yes (Hospitalization)
  Sender: FDA-Public Use
  Company Number: FR-VERTEX PHARMACEUTICALS-2016-003531

PATIENT
  Age: 21 Year
  Sex: Female

DRUGS (10)
  1. TOCO [Concomitant]
     Active Substance: UNSPECIFIED INGREDIENT
  2. FORLAX [Concomitant]
     Active Substance: POLYETHYLENE GLYCOL 4000
  3. ZITHROMAX [Concomitant]
     Active Substance: AZITHROMYCIN DIHYDRATE
  4. PULMOZYME [Concomitant]
     Active Substance: DORNASE ALFA
  5. UVEDOSE [Concomitant]
     Active Substance: CHOLECALCIFEROL
  6. EUROBIOL [Concomitant]
  7. VITAMIN A [Concomitant]
     Active Substance: VITAMIN A
  8. INNOVAIR [Concomitant]
     Active Substance: BECLOMETHASONE DIPROPIONATE\FORMOTEROL
  9. ORKAMBI [Suspect]
     Active Substance: IVACAFTOR\LUMACAFTOR
     Indication: CYSTIC FIBROSIS
     Dosage: 2 DF, BID
     Route: 048
     Dates: start: 20160517, end: 20160527
  10. NASONEX [Concomitant]
     Active Substance: MOMETASONE FUROATE

REACTIONS (3)
  - Respiratory symptom [Unknown]
  - Dyspnoea [Unknown]
  - Lung infection [Unknown]

NARRATIVE: CASE EVENT DATE: 20160521
